FAERS Safety Report 8187551-1 (Version None)
Quarter: 2012Q1

REPORT INFORMATION
  Report Type: 
  Country: None (occurrence: None)
  Receive Date: 20120306
  Receipt Date: 20120227
  Transmission Date: 20120608
  Serious: Yes (Other)
  Sender: FDA-Public Use
  Company Number: PT-GLAXOSMITHKLINE-B0785747A

PATIENT
  Sex: Male

DRUGS (1)
  1. NICOTINE [Suspect]
     Indication: TOBACCO USER
     Route: 062

REACTIONS (5)
  - DYSKINESIA [None]
  - MUSCLE SPASMS [None]
  - MUSCLE HYPERTROPHY [None]
  - MYOTONIA [None]
  - BACK PAIN [None]
